FAERS Safety Report 12607480 (Version 1)
Quarter: 2016Q3

REPORT INFORMATION
  Report Type: Spontaneous
  Country: DE (occurrence: DE)
  Receive Date: 20160729
  Receipt Date: 20160729
  Transmission Date: 20161109
  Serious: Yes (Disabling)
  Sender: FDA-Public Use
  Company Number: DE-WATSON-2016-15853

PATIENT
  Age: 37 Year
  Sex: Male
  Weight: 60 kg

DRUGS (1)
  1. MOXIFLOXACIN (UNKNOWN) [Suspect]
     Active Substance: MOXIFLOXACIN
     Indication: ACUTE SINUSITIS
     Dosage: 400 MG, UNKNOWN
     Route: 048
     Dates: start: 20160301, end: 20160308

REACTIONS (6)
  - Tremor [Unknown]
  - Musculoskeletal discomfort [Not Recovered/Not Resolved]
  - Rash [Unknown]
  - Myalgia [Not Recovered/Not Resolved]
  - Tendonitis [Not Recovered/Not Resolved]
  - Muscular weakness [Not Recovered/Not Resolved]

NARRATIVE: CASE EVENT DATE: 2016
